FAERS Safety Report 7678076-8 (Version None)
Quarter: 2011Q3

REPORT INFORMATION
  Report Type: 
  Country: None (occurrence: None)
  Receive Date: 20110811
  Receipt Date: 20110727
  Transmission Date: 20111222
  Serious: No
  Sender: FDA-Public Use
  Company Number: US-BAYER-2011-062509

PATIENT
  Age: 37 Year
  Sex: Female

DRUGS (3)
  1. BETASERON [Suspect]
     Indication: MULTIPLE SCLEROSIS
     Dosage: 2 MIU, QOD
     Route: 058
     Dates: start: 20110713
  2. TYLENOL ACHES + STRAINS [Concomitant]
  3. BENADRYL [Concomitant]

REACTIONS (7)
  - INJECTION SITE HAEMATOMA [None]
  - NECK PAIN [None]
  - PYREXIA [None]
  - INJECTION SITE PAIN [None]
  - INJECTION SITE SWELLING [None]
  - PAIN [None]
  - INJECTION SITE ERYTHEMA [None]
